FAERS Safety Report 24637013 (Version 1)
Quarter: 2024Q4

REPORT INFORMATION
  Report Type: Spontaneous
  Country: SE (occurrence: SE)
  Receive Date: 20241119
  Receipt Date: 20241119
  Transmission Date: 20250114
  Serious: Yes (Life-Threatening)
  Sender: GUERBET
  Company Number: None

PATIENT
  Age: 55 Year
  Sex: Male
  Weight: 103 kg

DRUGS (1)
  1. DOTAREM [Suspect]
     Active Substance: GADOTERATE MEGLUMINE
     Indication: Magnetic resonance imaging
     Dosage: 20ML
     Route: 042
     Dates: start: 20241024, end: 20241024

REACTIONS (2)
  - Dysphonia [Unknown]
  - Dyspnoea [Recovering/Resolving]

NARRATIVE: CASE EVENT DATE: 20241024
